FAERS Safety Report 15474717 (Version 1)
Quarter: 2018Q4

REPORT INFORMATION
  Report Type: Spontaneous
  Country: US (occurrence: US)
  Receive Date: 20181008
  Receipt Date: 20181008
  Transmission Date: 20190205
  Serious: No
  Sender: FDA-Public Use
  Company Number: US-BAYER-2018-186827

PATIENT
  Sex: Female

DRUGS (1)
  1. MIRENA [Suspect]
     Active Substance: LEVONORGESTREL
     Indication: CONTRACEPTION
     Dosage: 20 MCG/24HR, CONT
     Route: 015
     Dates: start: 20181002, end: 20181002

REACTIONS (4)
  - Post procedural discomfort [None]
  - Product quality issue [None]
  - Uterine cervix stenosis [None]
  - Complication of device insertion [None]

NARRATIVE: CASE EVENT DATE: 20181002
